FAERS Safety Report 22607213 (Version 5)
Quarter: 2024Q1

REPORT INFORMATION
  Report Type: Report from Study
  Country: US (occurrence: US)
  Receive Date: 20230615
  Receipt Date: 20240322
  Transmission Date: 20240410
  Serious: Yes (Other)
  Sender: FDA-Public Use
  Company Number: US-ABBVIE-5290546

PATIENT
  Age: 68 Year
  Sex: Female
  Weight: 95 kg

DRUGS (10)
  1. HUMIRA [Suspect]
     Active Substance: ADALIMUMAB
     Indication: Product used for unknown indication
     Route: 058
  2. HYDROCHLOROTHIAZIDE\RAMIPRIL [Concomitant]
     Active Substance: HYDROCHLOROTHIAZIDE\RAMIPRIL
     Indication: Product used for unknown indication
     Dosage: PILL?FORM STRENGTH: 125 MG
     Route: 048
  3. RINVOQ [Suspect]
     Active Substance: UPADACITINIB
     Indication: Rheumatoid arthritis
     Route: 048
     Dates: start: 20221229, end: 20230707
  4. CELEBREX [Suspect]
     Active Substance: CELECOXIB
     Indication: Osteoarthritis
     Dosage: FORM STRENGTH: 100 MG
     Route: 048
     Dates: end: 2023
  5. METHOTREXATE [Suspect]
     Active Substance: METHOTREXATE
     Indication: Rheumatoid arthritis
     Dosage: FORM STRENGTH: 90 MG?FREQUENCY TEXT: WEEKLY MON
     Route: 048
     Dates: start: 20230107, end: 20230616
  6. OMEPRAZOLE [Concomitant]
     Active Substance: OMEPRAZOLE
     Indication: Product used for unknown indication
     Dosage: FREQUENCY TEXT: 4XWEEKS
     Route: 048
     Dates: end: 20230712
  7. LOSARTAN [Concomitant]
     Active Substance: LOSARTAN
     Indication: Hypertension
     Dosage: PILL?FORM STRENGTH: 50 MG
     Route: 048
     Dates: end: 20230713
  8. SYMBICORT [Concomitant]
     Active Substance: BUDESONIDE\FORMOTEROL FUMARATE DIHYDRATE
     Indication: Asthma
     Dosage: 2 PUFFS, 160/45
     Route: 055
  9. ATORVASTATIN [Concomitant]
     Active Substance: ATORVASTATIN
     Indication: Blood cholesterol increased
     Dosage: PILL?FORM STRENGTH: 40 MG
     Route: 048
  10. HCA [Concomitant]
     Indication: Asthma
     Dosage: 2 PUFFS?FORM STRENGTH: 90 MG?PROPERTIL HCA
     Route: 055

REACTIONS (5)
  - Cataract [Unknown]
  - Blood creatinine increased [Recovering/Resolving]
  - Musculoskeletal stiffness [Recovering/Resolving]
  - Pain in extremity [Recovering/Resolving]
  - Glomerular filtration rate increased [Unknown]

NARRATIVE: CASE EVENT DATE: 20230524
